FAERS Safety Report 4377111-2 (Version None)
Quarter: 2004Q2

REPORT INFORMATION
  Report Type: 
  Country: None (occurrence: None)
  Receive Date: 20040608
  Receipt Date: 20040524
  Transmission Date: 20050107
  Serious: Yes (Life-Threatening, Hospitalization)
  Sender: FDA-Public Use
  Company Number: A02200401691

PATIENT
  Age: 50 Year
  Sex: Male

DRUGS (7)
  1. FASTURTEC- (RASBURICASE) - SOLUTION - UNITE DOSE: UNKNOWN [Suspect]
     Dosage: INTRAVENOUS NO
     Route: 042
     Dates: start: 20040331
  2. KAYEXALATE [Concomitant]
  3. ADRIBLASTINE (DOXORUBICIN HYDROCHLORIDE) [Concomitant]
  4. VELBAN [Concomitant]
  5. BLEOMYCINE (BLEOMYCIN) [Concomitant]
  6. DACARBAZINE [Concomitant]
  7. THRITHERAPY NOS [Concomitant]

REACTIONS (4)
  - AGRANULOCYTOSIS [None]
  - ANAPHYLACTIC SHOCK [None]
  - DIARRHOEA [None]
  - PYREXIA [None]
